FAERS Safety Report 16325846 (Version 2)
Quarter: 2019Q2

REPORT INFORMATION
  Report Type: Spontaneous
  Country: IT (occurrence: IT)
  Receive Date: 20190517
  Receipt Date: 20190612
  Transmission Date: 20190711
  Serious: Yes (Death, Other)
  Sender: FDA-Public Use
  Company Number: IT-SA-2019SA134974

PATIENT
  Age: 60 Year
  Sex: Male
  Weight: 85 kg

DRUGS (1)
  1. MYOZYME [Suspect]
     Active Substance: ALGLUCOSIDASE ALFA
     Dosage: 20 MG/KG, Q2M
     Route: 042
     Dates: start: 201105, end: 20190410

REACTIONS (3)
  - Cardiac arrest [Fatal]
  - Myocardial ischaemia [Fatal]
  - Acute myocardial infarction [Fatal]

NARRATIVE: CASE EVENT DATE: 20190420
